FAERS Safety Report 4756364-2 (Version None)
Quarter: 2005Q3

REPORT INFORMATION
  Report Type: 
  Country: None (occurrence: None)
  Receive Date: 20050830
  Receipt Date: 20050607
  Transmission Date: 20060218
  Serious: Yes (Disabling)
  Sender: FDA-Public Use
  Company Number: US-GLAXOSMITHKLINE-A0561825A

PATIENT
  Age: 44 Year
  Sex: Female

DRUGS (3)
  1. WELLBUTRIN [Suspect]
     Indication: DEPRESSION
     Dosage: 450MG PER DAY
     Route: 048
  2. LITHIUM [Concomitant]
  3. XANAX [Concomitant]

REACTIONS (4)
  - AMNESIA [None]
  - GRAND MAL CONVULSION [None]
  - INCONTINENCE [None]
  - TONGUE BITING [None]
